FAERS Safety Report 24226828 (Version 3)
Quarter: 2024Q4

REPORT INFORMATION
  Report Type: Spontaneous
  Country: US (occurrence: US)
  Receive Date: 20240820
  Receipt Date: 20241013
  Transmission Date: 20250114
  Serious: Yes (Life-Threatening, Hospitalization, Other)
  Sender: NOVARTIS
  Company Number: US-002147023-NVSC2024US167680

PATIENT

DRUGS (4)
  1. COSENTYX [Suspect]
     Active Substance: SECUKINUMAB
     Indication: Ankylosing spondylitis
     Dosage: UNK
     Route: 065
  2. REMICADE [Suspect]
     Active Substance: INFLIXIMAB
     Indication: Product used for unknown indication
     Dosage: UNK
     Route: 065
  3. ENBREL [Suspect]
     Active Substance: ETANERCEPT
     Indication: Product used for unknown indication
     Dosage: UNK
     Route: 065
  4. HUMIRA [Suspect]
     Active Substance: ADALIMUMAB
     Indication: Product used for unknown indication
     Dosage: UNK
     Route: 065

REACTIONS (15)
  - Hypertensive crisis [Unknown]
  - Sepsis [Unknown]
  - Inflammatory bowel disease [Unknown]
  - Gastrointestinal haemorrhage [Unknown]
  - Streptobacillus infection [Unknown]
  - Bone marrow oedema [Unknown]
  - Spinal disorder [Unknown]
  - Spondylitis [Unknown]
  - Cardiac disorder [Unknown]
  - Sacroiliitis [Unknown]
  - Feeling of despair [Unknown]
  - COVID-19 [Unknown]
  - Asthma [Unknown]
  - Migraine [Unknown]
  - Drug ineffective [Unknown]
